FAERS Safety Report 12885635 (Version 1)
Quarter: 2016Q4

REPORT INFORMATION
  Report Type: Spontaneous
  Country: DE (occurrence: DE)
  Receive Date: 20161026
  Receipt Date: 20161026
  Transmission Date: 20170207
  Serious: Yes (Other)
  Sender: FDA-Public Use
  Company Number: DE-TEVA-704262GER

PATIENT
  Age: 55 Year

DRUGS (2)
  1. COPAXONE [Suspect]
     Active Substance: GLATIRAMER ACETATE
  2. COPAXONE [Suspect]
     Active Substance: GLATIRAMER ACETATE
     Dates: start: 2007

REACTIONS (9)
  - Biliary colic [Unknown]
  - Gout [Unknown]
  - Cardiac failure [Unknown]
  - Visual impairment [Unknown]
  - Gait disturbance [Unknown]
  - Fatigue [Unknown]
  - Muscle spasms [Unknown]
  - Language disorder [Unknown]
  - Multiple sclerosis relapse [Unknown]
